FAERS Safety Report 11489390 (Version 1)
Quarter: 2015Q3

REPORT INFORMATION
  Report Type: Spontaneous
  Country: US (occurrence: US)
  Receive Date: 20150909
  Receipt Date: 20150909
  Transmission Date: 20151125
  Serious: No
  Sender: FDA-Public Use
  Company Number: US-JAZZ-2015-US-005499

PATIENT
  Age: 13 Year
  Sex: Female

DRUGS (3)
  1. XYREM [Suspect]
     Active Substance: SODIUM OXYBATE
     Indication: NARCOLEPSY
     Dosage: 2.25 G, BID
     Route: 048
     Dates: start: 20150410, end: 20150411
  2. XYREM [Suspect]
     Active Substance: SODIUM OXYBATE
     Dosage: 2.25 G, QD
     Route: 048
     Dates: start: 20150412
  3. MIDOL [Concomitant]
     Active Substance: IBUPROFEN
     Indication: PRODUCT USED FOR UNKNOWN INDICATION
     Dosage: UNK
     Dates: start: 20150403

REACTIONS (7)
  - Hypokinesia [Unknown]
  - Incorrect dose administered [Unknown]
  - Vertigo [Not Recovered/Not Resolved]
  - Feeling abnormal [Unknown]
  - Unevaluable event [Unknown]
  - Inappropriate affect [Not Recovered/Not Resolved]
  - Dizziness [Unknown]

NARRATIVE: CASE EVENT DATE: 20150410
